FAERS Safety Report 8164380-6 (Version None)
Quarter: 2012Q1

REPORT INFORMATION
  Report Type: 
  Country: None (occurrence: None)
  Receive Date: 20120224
  Receipt Date: 20120126
  Transmission Date: 20120608
  Serious: Yes (Disabling)
  Sender: FDA-Public Use
  Company Number: GB-PFIZER INC-GB-WYE-G03720109

PATIENT
  Sex: Male

DRUGS (10)
  1. SERTRALINE [Concomitant]
     Dosage: UNK
     Route: 065
  2. LANSOPRAZOLE [Suspect]
     Indication: GASTRIC PH DECREASED
     Dosage: 30 MG, 1X/DAY
     Route: 048
     Dates: start: 20060520
  3. ATENOLOL [Suspect]
     Indication: HYPERTENSION
     Dosage: 25 MG, 1X/DAY
     Route: 048
     Dates: start: 20060101
  4. PARACETAMOL [Concomitant]
     Dosage: UNK
  5. RAMIPRIL [Suspect]
     Indication: HYPERTENSION
     Dosage: 10 MG, 1X/DAY
     Route: 048
     Dates: start: 20060101
  6. RAMIPRIL [Suspect]
     Dosage: 25 MG
     Route: 048
  7. OLANZAPINE [Concomitant]
     Dosage: UNK
     Route: 065
  8. TRAMADOL [Concomitant]
     Dosage: UNK
     Route: 065
  9. ROSUVASTATIN [Suspect]
     Indication: HYPERCHOLESTEROLAEMIA
     Dosage: 10 MG, 1X/DAY
     Dates: start: 20060101
  10. EZETIMIBE [Suspect]
     Indication: HYPERCHOLESTEROLAEMIA
     Dosage: 10 MG, 1X/DAY
     Route: 048
     Dates: start: 20060101

REACTIONS (1)
  - DEPRESSION [None]
